FAERS Safety Report 18103584 (Version 7)
Quarter: 2021Q2

REPORT INFORMATION
  Report Type: Spontaneous
  Country: US (occurrence: US)
  Receive Date: 20200803
  Receipt Date: 20210622
  Transmission Date: 20210717
  Serious: No
  Sender: FDA-Public Use
  Company Number: US-PFIZER INC-2019095756

PATIENT
  Age: 80 Year
  Sex: Female
  Weight: 63.05 kg

DRUGS (4)
  1. TRAMADOL. [Concomitant]
     Active Substance: TRAMADOL
     Indication: HEADACHE
     Dosage: 50 MG
  2. RELPAX [Suspect]
     Active Substance: ELETRIPTAN HYDROBROMIDE
     Indication: MIGRAINE
     Dosage: 40 MG, AS NEEDED
     Route: 048
  3. VALIUM [Concomitant]
     Active Substance: DIAZEPAM
     Indication: ANXIETY
     Dosage: 2 MG, ONE TABLET TWICE DAILY AS NEEDED
     Route: 048
  4. RELPAX [Suspect]
     Active Substance: ELETRIPTAN HYDROBROMIDE
     Dosage: 40 MG
     Route: 048

REACTIONS (7)
  - Migraine [Unknown]
  - Weight decreased [Unknown]
  - Fall [Unknown]
  - Spinal disorder [Unknown]
  - Concussion [Unknown]
  - Stress [Unknown]
  - Illness [Unknown]

NARRATIVE: CASE EVENT DATE: 202008
